FAERS Safety Report 8286230-X (Version None)
Quarter: 2012Q2

REPORT INFORMATION
  Report Type: 
  Country: None (occurrence: None)
  Receive Date: 20120416
  Receipt Date: 20120410
  Transmission Date: 20120825
  Serious: Yes (Hospitalization, Other)
  Sender: FDA-Public Use
  Company Number: US-PFIZER INC-2011222632

PATIENT
  Sex: Female

DRUGS (12)
  1. CHANTIX [Suspect]
     Indication: SMOKING CESSATION THERAPY
     Dosage: STARTER PACKS
     Dates: start: 20090801, end: 20090901
  2. HYDROCODONE [Concomitant]
     Indication: PAIN
     Dosage: UNK
     Dates: start: 20080225
  3. GABAPENTIN [Concomitant]
     Indication: BACK PAIN
  4. CYMBALTA [Concomitant]
     Indication: ARTHRITIS
     Dosage: UNK
     Dates: start: 20090408
  5. CYMBALTA [Concomitant]
     Indication: BACK PAIN
  6. CYMBALTA [Concomitant]
     Indication: FIBROMYALGIA
  7. XANAX [Concomitant]
     Indication: ARTHRITIS
     Dosage: UNK
     Dates: start: 20090911
  8. AMBIEN [Concomitant]
     Indication: INSOMNIA
     Dosage: UNK
     Dates: start: 20090110
  9. GABAPENTIN [Concomitant]
     Indication: ARTHRITIS
     Dosage: UNK
     Dates: start: 20090306, end: 20100722
  10. XANAX [Concomitant]
     Indication: BACK PAIN
  11. GABAPENTIN [Concomitant]
     Indication: FIBROMYALGIA
  12. XANAX [Concomitant]
     Indication: FIBROMYALGIA

REACTIONS (8)
  - IRRITABILITY [None]
  - DEPRESSION [None]
  - HYPERAESTHESIA [None]
  - LOSS OF CONSCIOUSNESS [None]
  - PANIC ATTACK [None]
  - AMNESIA [None]
  - HEADACHE [None]
  - ANXIETY [None]
